FAERS Safety Report 6897358-0 (Version None)
Quarter: 2010Q3

REPORT INFORMATION
  Report Type: 
  Country: None (occurrence: None)
  Receive Date: 20100802
  Receipt Date: 20070518
  Transmission Date: 20110219
  Serious: No
  Sender: FDA-Public Use
  Company Number: US-PFIZER INC-2007040222

PATIENT
  Sex: Male

DRUGS (2)
  1. LYRICA [Suspect]
     Indication: POST HERPETIC NEURALGIA
  2. HYDROCODONE BITARTRATE [Concomitant]

REACTIONS (6)
  - DRUG INEFFECTIVE [None]
  - DYSARTHRIA [None]
  - FALL [None]
  - MALAISE [None]
  - MEMORY IMPAIRMENT [None]
  - MUSCULAR WEAKNESS [None]
